FAERS Safety Report 19555306 (Version 2)
Quarter: 2021Q3

REPORT INFORMATION
  Report Type: Spontaneous
  Country: US (occurrence: US)
  Receive Date: 20210715
  Receipt Date: 20210827
  Transmission Date: 20211014
  Serious: No
  Sender: FDA-Public Use
  Company Number: US-PFIZER INC-2021717438

PATIENT
  Age: 13 Year
  Sex: Female

DRUGS (1)
  1. GENOTROPIN [Suspect]
     Active Substance: SOMATROPIN
     Indication: GROWTH HORMONE DEFICIENCY
     Dosage: 1.8 MG, 1X/DAY (BETWEEN 9?9:30)
     Route: 058

REACTIONS (3)
  - Poor quality device used [Unknown]
  - Product storage error [Unknown]
  - Device information output issue [Unknown]

NARRATIVE: CASE EVENT DATE: 20210614
